FAERS Safety Report 14815309 (Version 2)
Quarter: 2018Q2

REPORT INFORMATION
  Report Type: Spontaneous
  Country: TR (occurrence: TR)
  Receive Date: 20180426
  Receipt Date: 20180523
  Transmission Date: 20180711
  Serious: Yes (Life-Threatening)
  Sender: FDA-Public Use
  Company Number: TR-PFIZER INC-2018171516

PATIENT
  Age: 55 Year
  Sex: Female
  Weight: 74 kg

DRUGS (1)
  1. CHAMPIX [Suspect]
     Active Substance: VARENICLINE TARTRATE
     Indication: SMOKING CESSATION THERAPY
     Dosage: 1 MG, UNK
     Route: 048
     Dates: start: 20180302, end: 20180311

REACTIONS (4)
  - Laryngeal oedema [Recovering/Resolving]
  - Asphyxia [Recovering/Resolving]
  - Pruritus [Recovering/Resolving]
  - Eye pruritus [Recovering/Resolving]

NARRATIVE: CASE EVENT DATE: 20180308
